FAERS Safety Report 8287588-8 (Version None)
Quarter: 2012Q2

REPORT INFORMATION
  Report Type: 
  Country: None (occurrence: None)
  Receive Date: 20120416
  Receipt Date: 20120409
  Transmission Date: 20120825
  Serious: Yes (Life-Threatening, Disabling, Other)
  Sender: FDA-Public Use
  Company Number: PHHY2012MX027460

PATIENT
  Sex: Male
  Weight: 90 kg

DRUGS (1)
  1. EXJADE [Suspect]
     Indication: HEREDITARY HAEMOCHROMATOSIS
     Dosage: 1000 MG,DAILY
     Route: 048
     Dates: start: 20120120, end: 20120128

REACTIONS (11)
  - NEUTROPENIA [None]
  - CHOLELITHIASIS [None]
  - SKIN LESION [None]
  - PYREXIA [None]
  - BILIARY COLIC [None]
  - ANAEMIA [None]
  - ERYTHEMA MULTIFORME [None]
  - DYSPNOEA EXERTIONAL [None]
  - ACUTE LYMPHOCYTIC LEUKAEMIA [None]
  - ASTHENIA [None]
  - PALLOR [None]
